FAERS Safety Report 8027328-0 (Version None)
Quarter: 2012Q1

REPORT INFORMATION
  Report Type: 
  Country: None (occurrence: None)
  Receive Date: 20120106
  Receipt Date: 20120102
  Transmission Date: 20120608
  Serious: Yes (Hospitalization)
  Sender: FDA-Public Use
  Company Number: US-BRISTOL-MYERS SQUIBB COMPANY-16325029

PATIENT
  Age: 54 Year
  Sex: Male

DRUGS (1)
  1. IFOSFAMIDE [Suspect]
     Indication: SARCOMA

REACTIONS (2)
  - TREMOR [None]
  - ENCEPHALOPATHY [None]
